FAERS Safety Report 10166417 (Version 1)
Quarter: 2014Q2

REPORT INFORMATION
  Report Type: Spontaneous
  Country: US (occurrence: None)
  Receive Date: 20140509
  Receipt Date: 20140509
  Transmission Date: 20141212
  Serious: Yes (Hospitalization)
  Sender: FDA-Public Use
  Company Number: None

PATIENT
  Age: 56 Year
  Sex: Male
  Weight: 140.62 kg

DRUGS (2)
  1. CLOPIDOGREL 75MG [Suspect]
     Indication: ANTIPLATELET THERAPY
     Dosage: 1 TABLET, QD, ORAL
     Route: 048
     Dates: start: 20140212, end: 20140310
  2. LISINOPRIL 20 MG [Concomitant]

REACTIONS (6)
  - Rash macular [None]
  - Rash [None]
  - Dysphagia [None]
  - Hypersensitivity [None]
  - Angioedema [None]
  - Rash [None]
